FAERS Safety Report 25149643 (Version 1)
Quarter: 2025Q2

REPORT INFORMATION
  Report Type: Spontaneous
  Country: CH (occurrence: CH)
  Receive Date: 20250402
  Receipt Date: 20250402
  Transmission Date: 20250717
  Serious: Yes (Hospitalization, Other)
  Sender: STRIDES
  Company Number: CH-STRIDES ARCOLAB LIMITED-2025SP004187

PATIENT
  Age: 16 Year
  Sex: Male

DRUGS (9)
  1. COLCHICINE [Suspect]
     Active Substance: COLCHICINE
     Indication: Pericarditis constrictive
     Route: 065
  2. COLCHICINE [Suspect]
     Active Substance: COLCHICINE
     Route: 065
  3. IBUPROFEN [Suspect]
     Active Substance: IBUPROFEN
     Indication: Pericarditis constrictive
     Route: 065
  4. IBUPROFEN [Suspect]
     Active Substance: IBUPROFEN
     Route: 065
  5. PREDNISOLONE [Suspect]
     Active Substance: PREDNISOLONE
     Indication: Pericarditis constrictive
     Route: 048
  6. PREDNISOLONE [Suspect]
     Active Substance: PREDNISOLONE
     Route: 048
  7. PREDNISOLONE [Suspect]
     Active Substance: PREDNISOLONE
     Route: 048
  8. PREDNISOLONE [Suspect]
     Active Substance: PREDNISOLONE
     Route: 048
  9. PREDNISOLONE [Suspect]
     Active Substance: PREDNISOLONE
     Route: 048

REACTIONS (2)
  - Pericarditis [Recovered/Resolved]
  - Drug ineffective for unapproved indication [Unknown]
